FAERS Safety Report 16427971 (Version 1)
Quarter: 2019Q2

REPORT INFORMATION
  Report Type: Spontaneous
  Country: US (occurrence: US)
  Receive Date: 20190613
  Receipt Date: 20190613
  Transmission Date: 20190711
  Serious: No
  Sender: FDA-Public Use
  Company Number: US-SA-2019SA159404

PATIENT
  Age: 32 Year
  Sex: Female

DRUGS (7)
  1. DUPIXENT [Suspect]
     Active Substance: DUPILUMAB
     Indication: DERMATITIS
     Dosage: 300 MG, QOW
     Route: 058
  2. PREDNISONE. [Concomitant]
     Active Substance: PREDNISONE
  3. CEPHALEXIN HCL [Concomitant]
     Active Substance: CEPHALEXIN HYDROCHLORIDE
  4. CETRIZINE [Concomitant]
     Active Substance: CETIRIZINE HYDROCHLORIDE
  5. TACROLIMUS. [Concomitant]
     Active Substance: TACROLIMUS
  6. TRIAMCINOLONE [Concomitant]
     Active Substance: TRIAMCINOLONE
  7. KETOCONAZOLE. [Concomitant]
     Active Substance: KETOCONAZOLE

REACTIONS (2)
  - Eye discharge [Not Recovered/Not Resolved]
  - Eye irritation [Not Recovered/Not Resolved]
